FAERS Safety Report 4452781-9 (Version None)
Quarter: 2004Q3

REPORT INFORMATION
  Report Type: 
  Country: None (occurrence: None)
  Receive Date: 20040916
  Receipt Date: 20040903
  Transmission Date: 20050211
  Serious: Yes (Hospitalization)
  Sender: FDA-Public Use
  Company Number: 2003118896

PATIENT
  Age: 67 Year
  Sex: Female

DRUGS (2)
  1. VIAGRA [Suspect]
     Indication: PULMONARY HYPERTENSION
     Dosage: 100 MG (4 IN 1 D), ORAL
     Route: 048
     Dates: start: 20030530
  2. CYCLOPHOSPHAMIDE [Suspect]
     Indication: ILL-DEFINED DISORDER
     Dates: end: 20030901

REACTIONS (9)
  - COLON ADENOMA [None]
  - COLONIC POLYP [None]
  - CORONARY ARTERY STENOSIS [None]
  - DIARRHOEA [None]
  - HOT FLUSH [None]
  - HYPERHIDROSIS [None]
  - PULMONARY ARTERIAL PRESSURE DECREASED [None]
  - PULMONARY ARTERIAL PRESSURE INCREASED [None]
  - UNEXPECTED THERAPEUTIC DRUG EFFECT [None]
